FAERS Safety Report 10238517 (Version 1)
Quarter: 2014Q2

REPORT INFORMATION
  Report Type: Report from Study
  Country: PL (occurrence: PL)
  Receive Date: 20140616
  Receipt Date: 20140616
  Transmission Date: 20141212
  Serious: Yes (Other)
  Sender: FDA-Public Use
  Company Number: PL-ASTELLAS-2014EU007527

PATIENT
  Age: 49 Year
  Sex: Male
  Weight: 62.5 kg

DRUGS (4)
  1. TACROLIMUS [Suspect]
     Indication: RENAL TRANSPLANT
     Route: 065
     Dates: start: 20100602, end: 20101030
  2. TACROLIMUS [Suspect]
     Route: 065
     Dates: start: 20101030
  3. CELLCEPT                           /01275102/ [Concomitant]
     Indication: PRODUCT USED FOR UNKNOWN INDICATION
     Dosage: 1500 UNK, UNKNOWN FREQ.
     Route: 065
  4. STEROID [Concomitant]
     Indication: PRODUCT USED FOR UNKNOWN INDICATION
     Dosage: 30 UNK, UNKNOWN FREQ.
     Route: 065

REACTIONS (2)
  - Biopsy kidney abnormal [Unknown]
  - Cytomegalovirus infection [Unknown]
